FAERS Safety Report 7331864-X (Version None)
Quarter: 2011Q1

REPORT INFORMATION
  Report Type: 
  Country: None (occurrence: None)
  Receive Date: 20110304
  Receipt Date: 20100712
  Transmission Date: 20110831
  Serious: Yes (Hospitalization, Other)
  Sender: FDA-Public Use
  Company Number: US-PFIZER INC-2009289907

PATIENT
  Sex: Female
  Weight: 102 kg

DRUGS (26)
  1. ZOCOR [Concomitant]
     Dosage: 20 MG, 1X/DAY, AT BEDTIME
     Route: 048
  2. ACETAMINOPHEN [Concomitant]
     Indication: PAIN
  3. DILANTIN [Suspect]
     Dosage: 200 MG, 3X/DAY
     Route: 048
     Dates: start: 20080403, end: 20080408
  4. FENTANYL [Concomitant]
     Indication: HEADACHE
     Dosage: 25 UG, 3X/DAY, AS NEEDED
     Route: 042
     Dates: start: 20080403, end: 20080410
  5. LEVETIRACETAM [Concomitant]
     Dosage: 500 MG, 2X/DAY
     Route: 048
     Dates: start: 20080414, end: 20080415
  6. DILANTIN [Suspect]
     Indication: CONVULSION PROPHYLAXIS
     Dosage: 100 MG, 3X/DAY
     Route: 042
     Dates: start: 20080331
  7. DILANTIN [Suspect]
     Dosage: 150 MG, 1 DOSE
     Route: 042
     Dates: start: 20080401, end: 20080401
  8. DILANTIN [Suspect]
     Dosage: 100 MG, 3X/DAY
     Route: 042
     Dates: start: 20080401
  9. DILANTIN-125 [Suspect]
     Indication: CONVULSION PROPHYLAXIS
     Dosage: 350 MG, 1 DOSE
     Route: 048
     Dates: start: 20080409
  10. KEPPRA [Concomitant]
     Indication: CONVULSION PROPHYLAXIS
     Dosage: 250 MG, 2X/DAY
     Route: 048
     Dates: start: 20080405
  11. NIMODIPINE [Concomitant]
     Dosage: 60 MG, EVERY 4 HRS
     Route: 048
     Dates: start: 20080401, end: 20080412
  12. LACTULOSE [Concomitant]
     Indication: CONSTIPATION
     Dosage: 30 ML, 4X/DAY
     Dates: start: 20080410, end: 20080412
  13. DILANTIN [Suspect]
     Dosage: 250 MG, UNK
     Route: 042
     Dates: start: 20080401, end: 20080402
  14. ACETAMINOPHEN [Concomitant]
     Indication: PYREXIA
     Dosage: 650 MG, 4X/DAY, AS NEEDED
     Route: 048
     Dates: start: 20080403, end: 20080423
  15. CODEINE [Concomitant]
     Indication: HEADACHE
     Dosage: 30 MG, 4X/DAY, AS NEEDED
     Route: 048
     Dates: start: 20080411, end: 20080413
  16. ATIVAN [Concomitant]
     Indication: AGITATION
     Dosage: 4 MG, UNK
     Route: 042
     Dates: start: 20080331
  17. DILANTIN [Suspect]
     Dosage: 1 G IN 250 CC
     Route: 042
     Dates: start: 20080331
  18. SENNA [Concomitant]
     Dosage: 374 MG, 1X/DAY, EVERY NIGHT
     Route: 048
     Dates: start: 20080404, end: 20080412
  19. DILANTIN [Suspect]
     Dosage: 200 MG, 3X/DAY
     Route: 048
     Dates: start: 20080408, end: 20080415
  20. DOCUSATE [Concomitant]
     Indication: FAECES HARD
     Dosage: 100 MG, 2X/DAY
     Route: 048
     Dates: start: 20080404, end: 20080422
  21. CODEINE [Concomitant]
     Dosage: 60 MG, 4X/DAY, AS NEEDED
     Route: 048
     Dates: start: 20080413, end: 20080419
  22. HEPARIN [Concomitant]
     Dosage: 5000 UNITS
     Route: 058
     Dates: start: 20080413, end: 20080424
  23. PANTOPRAZOLE [Concomitant]
     Dosage: 40 MG, 2X/DAY
     Route: 048
     Dates: start: 20080419, end: 20080424
  24. DILANTIN [Suspect]
     Dosage: 200 MG, UNK
     Route: 042
     Dates: start: 20080402, end: 20080403
  25. ACETAMINOPHEN [Concomitant]
     Indication: HEADACHE
  26. LEVETIRACETAM [Concomitant]
     Dosage: 750 MG, 2X/DAY
     Route: 048
     Dates: start: 20080415, end: 20080421

REACTIONS (1)
  - STEVENS-JOHNSON SYNDROME [None]
